FAERS Safety Report 8710386 (Version 2)
Quarter: 2012Q4

REPORT INFORMATION
  Report Type: 
  Country: IN (occurrence: IN)
  Receive Date: 20120807
  Receipt Date: 20120919
  Transmission Date: 20130627
  Serious: No
  Sender: FDA-Public Use
  Company Number: IN-ELI_LILLY_AND_COMPANY-IN201207008892

PATIENT
  Sex: Male

DRUGS (1)
  1. HUMINSULIN REGULAR [Suspect]
     Indication: DIABETES MELLITUS
     Dosage: 40 IU, unknown
     Route: 058
     Dates: start: 20120722

REACTIONS (1)
  - Blood glucose increased [Recovered/Resolved]
